FAERS Safety Report 7119792-6 (Version None)
Quarter: 2010Q4

REPORT INFORMATION
  Report Type: 
  Country: None (occurrence: None)
  Receive Date: 20101123
  Receipt Date: 20100920
  Transmission Date: 20110411
  Serious: No
  Sender: FDA-Public Use
  Company Number: US-BRISTOL-MYERS SQUIBB COMPANY-15248552

PATIENT
  Age: 87 Year
  Sex: Female

DRUGS (1)
  1. ONGLYZA [Suspect]
     Dosage: 2 MONTHS AGO.
     Dates: start: 20100101

REACTIONS (2)
  - ABDOMINAL PAIN [None]
  - DRUG INEFFECTIVE [None]
